FAERS Safety Report 4764504-4 (Version None)
Quarter: 2005Q3

REPORT INFORMATION
  Report Type: 
  Country: None (occurrence: None)
  Receive Date: 20050906
  Receipt Date: 20050825
  Transmission Date: 20060218
  Serious: Yes (Hospitalization)
  Sender: FDA-Public Use
  Company Number: 2005098242

PATIENT
  Age: 76 Year
  Sex: Male
  Weight: 77.1115 kg

DRUGS (7)
  1. CELEBREX [Suspect]
     Indication: ARTHRITIS
  2. IBUPROFEN [Suspect]
     Indication: ARTHRITIS
     Dosage: (200 MG,)
     Dates: start: 20050701
  3. ALL OTHER THERAPEUTIC PRODUCTS (ALL OTHER THERAPEUTIC PRODUCTS) [Suspect]
     Indication: SPINAL DISORDER
     Dates: start: 20050609
  4. ALCOHOL (ETHANOL) [Suspect]
     Indication: ILL-DEFINED DISORDER
  5. DETROL LA [Suspect]
     Indication: HYPERTONIC BLADDER
     Dosage: 4 MG (4 MG, 1 IN 1 D), ORAL
     Route: 048
     Dates: start: 20050706
  6. WELLBUTRIN [Concomitant]
  7. NADOLOL [Concomitant]

REACTIONS (7)
  - ABASIA [None]
  - ALCOHOL USE [None]
  - BLADDER OBSTRUCTION [None]
  - DELAYED RECOVERY FROM ANAESTHESIA [None]
  - DRUG INEFFECTIVE [None]
  - INCORRECT DOSE ADMINISTERED [None]
  - PROSTATIC DISORDER [None]
